FAERS Safety Report 5672342-3 (Version None)
Quarter: 2008Q1

REPORT INFORMATION
  Report Type: 
  Country: None (occurrence: None)
  Receive Date: 20080318
  Receipt Date: 20080318
  Transmission Date: 20080703
  Serious: Yes (Other)
  Sender: FDA-Public Use
  Company Number: None

PATIENT
  Sex: Female
  Weight: 46.81 kg

DRUGS (1)
  1. RISPERIDONE [Suspect]
     Dosage: 1MG

REACTIONS (1)
  - OCULOGYRIC CRISIS [None]
